FAERS Safety Report 7903311-8 (Version None)
Quarter: 2011Q4

REPORT INFORMATION
  Report Type: 
  Country: None (occurrence: None)
  Receive Date: 20111109
  Receipt Date: 20111107
  Transmission Date: 20120403
  Serious: Yes (Death)
  Sender: FDA-Public Use
  Company Number: US-PFIZER INC-2011272345

PATIENT
  Sex: Female
  Weight: 47.619 kg

DRUGS (1)
  1. PREPARATION H COOLING [Suspect]
     Indication: HAEMORRHOIDS
     Dosage: UNK, 1X/DAY

REACTIONS (1)
  - CARDIAC FAILURE [None]
